FAERS Safety Report 5924631-2 (Version None)
Quarter: 2008Q3

REPORT INFORMATION
  Report Type: 
  Country: None (occurrence: None)
  Receive Date: 20080909
  Receipt Date: 20080506
  Transmission Date: 20090109
  Serious: Yes (Hospitalization)
  Sender: FDA-Public Use
  Company Number: 163-20785-08021592

PATIENT
  Age: 68 Year
  Sex: Male
  Weight: 71.8044 kg

DRUGS (13)
  1. THALOMID [Suspect]
     Indication: MULTIPLE MYELOMA
     Dosage: 50 MG, 1 IN 1 D, ORAL; 100 MG, 1 IN 1 D, ORAL
     Route: 048
     Dates: start: 20060920, end: 20071001
  2. THALOMID [Suspect]
     Indication: MULTIPLE MYELOMA
     Dosage: 50 MG, 1 IN 1 D, ORAL; 100 MG, 1 IN 1 D, ORAL
     Route: 048
     Dates: start: 20071120, end: 20071201
  3. MORPHINE [Suspect]
     Indication: BONE PAIN
     Dosage: HIGH-DOSE, ORAL
     Route: 048
  4. DOCUSATE (DOCUSATE) [Concomitant]
  5. MULTIVITAMIN [Concomitant]
  6. CALCIUM (CALCIUM) [Concomitant]
  7. DEXAMETHASONE TAB [Concomitant]
  8. ASPIRIN [Concomitant]
  9. OMEPRAZOLE [Concomitant]
  10. SENNA (SENNA) [Concomitant]
  11. BISACODYL (BISACODYL) [Concomitant]
  12. GABA (GABAPENTIN) [Concomitant]
  13. CITOLOPRAM (CELEXA) (CITALOPRAM HYDROBROMIDE) [Concomitant]

REACTIONS (11)
  - ABDOMINAL PAIN [None]
  - ANAEMIA [None]
  - ANOREXIA [None]
  - BLOOD LACTATE DEHYDROGENASE INCREASED [None]
  - BONE PAIN [None]
  - CONDITION AGGRAVATED [None]
  - CONSTIPATION [None]
  - DECREASED APPETITE [None]
  - FALL [None]
  - NAUSEA [None]
  - NEUROPATHY PERIPHERAL [None]
